FAERS Safety Report 6190541-1 (Version None)
Quarter: 2009Q2

REPORT INFORMATION
  Report Type: 
  Country: None (occurrence: None)
  Receive Date: 20090511
  Receipt Date: 20080523
  Transmission Date: 20091009
  Serious: Yes (Other)
  Sender: FDA-Public Use
  Company Number: 48705

PATIENT
  Age: 49 Year
  Sex: Male
  Weight: 99.7913 kg

DRUGS (9)
  1. OCTREOTIDE ACETATE [Suspect]
     Indication: METASTASES TO LIVER
     Dosage: 100MCGSQ/X1; 25MGSQ/TID
     Route: 058
     Dates: start: 20080502
  2. OCTREOTIDE ACETATE [Suspect]
     Indication: PANCREATIC NEOPLASM
     Dosage: 100MCGSQ/X1; 25MGSQ/TID
     Route: 058
     Dates: start: 20080502
  3. OCTREOTIDE ACETATE [Suspect]
     Indication: METASTASES TO LIVER
     Dosage: 100MCGSQ/X1; 25MGSQ/TID
     Route: 058
     Dates: start: 20080519
  4. OCTREOTIDE ACETATE [Suspect]
     Indication: PANCREATIC NEOPLASM
     Dosage: 100MCGSQ/X1; 25MGSQ/TID
     Route: 058
     Dates: start: 20080519
  5. AMARYL [Concomitant]
  6. ACTOS [Concomitant]
  7. METFORMIN HCL [Concomitant]
  8. SIMVASTATIN [Concomitant]
  9. ACEON [Concomitant]

REACTIONS (2)
  - DIARRHOEA [None]
  - TACHYCARDIA [None]
